FAERS Safety Report 7517091-1 (Version None)
Quarter: 2011Q2

REPORT INFORMATION
  Report Type: 
  Country: None (occurrence: None)
  Receive Date: 20110503
  Receipt Date: 20100325
  Transmission Date: 20111010
  Serious: Yes (Hospitalization)
  Sender: FDA-Public Use
  Company Number: KV201000055

PATIENT
  Age: 74 Year
  Sex: Male
  Weight: 74.8 kg

DRUGS (32)
  1. GABAPENTIN [Concomitant]
  2. METOPROLOL SUCCINATE [Concomitant]
  3. CORDARONE /00133101/ (AMIODARONE) [Concomitant]
  4. FOLIC ACID [Concomitant]
  5. REQUIP [Concomitant]
  6. NITROGLYCERIN [Concomitant]
  7. COLCHICINE [Concomitant]
  8. TRENTAL [Concomitant]
  9. OMEPRAZOLE [Concomitant]
  10. ISOSORBIDE MONONITRATE [Suspect]
     Indication: ANGINA PECTORIS
     Dosage: 60 MG, QD, ORAL
     Route: 048
     Dates: start: 20080808
  11. PLAVIX [Concomitant]
  12. ASPIRIN [Concomitant]
  13. LOPRESSOR [Concomitant]
  14. DIAZEPAM [Concomitant]
  15. SIMVASTATIN [Concomitant]
  16. PANTOPRAZOLE [Concomitant]
  17. NORVASC /00972401/ (AMLODIPINE) [Concomitant]
  18. FLUOXETINE [Concomitant]
  19. LABETALOL HCL [Concomitant]
  20. LASIX [Concomitant]
  21. HYDROCODONE BITARTRATE AND ACETAMINOPHEN (HYDROCODONE BITARTRATE, PARA [Concomitant]
  22. ISOSORBIDE MONONITRATE [Suspect]
     Indication: ANGINA PECTORIS
     Dosage: 30 MG, QD X 7 DAYS, ORAL
     Route: 048
     Dates: start: 20080801, end: 20080807
  23. VALTREX [Concomitant]
  24. TESTOSTERONE [Concomitant]
  25. ZOLPIDEM [Concomitant]
  26. POTASSIUM CHLORIDE [Concomitant]
  27. DARVOCET [Concomitant]
  28. VALSARTAN [Concomitant]
  29. ALLOPURINOL [Concomitant]
  30. DOXAZOSIN MESYLATE [Concomitant]
  31. DILTIAZEM [Concomitant]
  32. TRAZODONE HCL [Concomitant]

REACTIONS (19)
  - DYSPNOEA [None]
  - FATIGUE [None]
  - PALPITATIONS [None]
  - VENTRICULAR TACHYCARDIA [None]
  - DYSGEUSIA [None]
  - MYOCARDIAL INFARCTION [None]
  - ATRIAL FIBRILLATION [None]
  - NAUSEA [None]
  - ANXIETY [None]
  - THROMBOPHLEBITIS SUPERFICIAL [None]
  - COUGH [None]
  - ASTHENIA [None]
  - CYANOSIS [None]
  - CHEST PAIN [None]
  - HYPERHIDROSIS [None]
  - HYPOTENSION [None]
  - VOMITING [None]
  - DIZZINESS [None]
  - BLOOD PRESSURE INCREASED [None]
